FAERS Safety Report 5912173-X (Version None)
Quarter: 2008Q4

REPORT INFORMATION
  Report Type: 
  Country: None (occurrence: None)
  Receive Date: 20081003
  Receipt Date: 20081003
  Transmission Date: 20090506
  Serious: Yes (Hospitalization)
  Sender: FDA-Public Use
  Company Number: None

PATIENT
  Sex: Female
  Weight: 20.5 kg

DRUGS (3)
  1. IRINOTECAN HYDROCHLORIDE [Suspect]
     Indication: NEUROBLASTOMA
     Dosage: 33 MG IVPB
     Route: 042
     Dates: start: 20080922, end: 20080926
  2. VELCADE [Suspect]
     Indication: NEUROBLASTOMA
     Dosage: 1 MG IVP
     Route: 042
     Dates: start: 20080922
  3. VELCADE [Suspect]
     Indication: NEUROBLASTOMA
     Dosage: 1 MG IVP
     Route: 042
     Dates: start: 20080925

REACTIONS (2)
  - BACILLUS INFECTION [None]
  - CENTRAL LINE INFECTION [None]
